FAERS Safety Report 24315661 (Version 2)
Quarter: 2024Q3

REPORT INFORMATION
  Report Type: Spontaneous
  Country: US (occurrence: US)
  Receive Date: 20240913
  Receipt Date: 20240927
  Transmission Date: 20241017
  Serious: No
  Sender: MERCK
  Company Number: US-009507513-2408USA006412

PATIENT
  Sex: Female
  Weight: 63.492 kg

DRUGS (7)
  1. WINREVAIR [Suspect]
     Active Substance: SOTATERCEPT-CSRK
     Dosage: UNK
  2. ORENITRAM [Concomitant]
     Active Substance: TREPROSTINIL
     Indication: Pulmonary arterial hypertension
     Dosage: 18 MILLIGRAM, EVERY 8 HOURS (TID); STRENGTH: 5 MG AND 1 MG
     Route: 048
     Dates: start: 20220929
  3. TADALAFIL [Concomitant]
     Active Substance: TADALAFIL
  4. TYLENOL [Concomitant]
     Active Substance: ACETAMINOPHEN
  5. ALBUTEROL SULFATE [Concomitant]
     Active Substance: ALBUTEROL SULFATE
  6. OPSUMIT [Concomitant]
     Active Substance: MACITENTAN
  7. OXYGEN [Concomitant]
     Active Substance: OXYGEN

REACTIONS (1)
  - General symptom [Unknown]
